FAERS Safety Report 5324503-0 (Version None)
Quarter: 2007Q2

REPORT INFORMATION
  Report Type: 
  Country: None (occurrence: None)
  Receive Date: 20070514
  Receipt Date: 20070504
  Transmission Date: 20071010
  Serious: Yes (Hospitalization)
  Sender: FDA-Public Use
  Company Number: BE-PFIZER INC-2006150833

PATIENT
  Sex: Male
  Weight: 71 kg

DRUGS (5)
  1. SU-011,248 [Suspect]
     Indication: RENAL CELL CARCINOMA STAGE UNSPECIFIED
     Route: 048
     Dates: start: 20060929, end: 20061203
  2. PANTOPRAZOLE SODIUM [Concomitant]
  3. HYDROMORPHONE HYDROCHLORIDE [Concomitant]
     Dates: start: 20060301
  4. ZOLPIDEM [Concomitant]
  5. DULOXETINE HYDROCHLORIDE [Concomitant]
     Dates: start: 20050101

REACTIONS (1)
  - ENCEPHALOPATHY [None]
